FAERS Safety Report 9127702 (Version 1)
Quarter: 2013Q1

REPORT INFORMATION
  Report Type: Spontaneous
  Country: US (occurrence: US)
  Receive Date: 20130228
  Receipt Date: 20130228
  Transmission Date: 20140127
  Serious: No
  Sender: FDA-Public Use
  Company Number: US-PFIZER INC-2013069889

PATIENT
  Age: 20 Year
  Sex: Female
  Weight: 58.05 kg

DRUGS (2)
  1. AZITHROMYCIN [Suspect]
     Indication: SINUSITIS
     Dosage: 250 MG, 2X/DAY ON THE FIRST DAY
     Dates: start: 20130208, end: 20130209
  2. AZITHROMYCIN [Suspect]
     Dosage: 250 MG, 1X/DAY (FOR FOUR DAYS)
     Dates: start: 20130209, end: 20130212

REACTIONS (2)
  - Rash generalised [Recovering/Resolving]
  - Eye swelling [Recovering/Resolving]
